FAERS Safety Report 23214978 (Version 11)
Quarter: 2024Q4

REPORT INFORMATION
  Report Type: Spontaneous
  Country: US (occurrence: US)
  Receive Date: 20231122
  Receipt Date: 20241202
  Transmission Date: 20250115
  Serious: Yes (Other)
  Sender: BRISTOL-MYERS SQUIBB COMPANY
  Company Number: US-BRISTOL-MYERS SQUIBB COMPANY-2023-167701

PATIENT
  Age: 66 Year
  Sex: Female

DRUGS (4)
  1. POMALYST [Suspect]
     Active Substance: POMALIDOMIDE
     Indication: Plasma cell myeloma
     Dosage: TAKE 1 CAPSULE BY MOUTH EVERY DAY FOR 21 DAYS FOLLOWED BY 7 DAYS OFF
     Route: 048
     Dates: start: 20211001
  2. POMALYST [Suspect]
     Active Substance: POMALIDOMIDE
     Dosage: TAKE 1 CAPSULE BY MOUTH EVERY DAY FOR 21 DAYS, FOLLOWED BY 7 DAYS OFF
     Route: 048
  3. POMALYST [Suspect]
     Active Substance: POMALIDOMIDE
     Dosage: TAKE 1 CAPSULE BY MOUTH EVERY DAY FOR 21 DAYS, FOLLOWED BY 7 DAYS OFF
     Route: 048
  4. POMALYST [Suspect]
     Active Substance: POMALIDOMIDE
     Dosage: TAKE 1 CAPSULE BY MOUTH EVERY DAY FOR 21 DAYS,FOLLOWED BY 7 DAYS OFF
     Route: 048

REACTIONS (17)
  - COVID-19 pneumonia [Recovered/Resolved]
  - Vomiting [Unknown]
  - Extra dose administered [Unknown]
  - Pain [Unknown]
  - Chromaturia [Recovering/Resolving]
  - Back pain [Recovering/Resolving]
  - Nausea [Unknown]
  - Arthropod bite [Recovering/Resolving]
  - Blister infected [Recovering/Resolving]
  - Swelling [Recovering/Resolving]
  - Fall [Recovering/Resolving]
  - Multiple fractures [Recovering/Resolving]
  - Cystitis [Recovering/Resolving]
  - Urinary incontinence [Recovering/Resolving]
  - Spinal fracture [Not Recovered/Not Resolved]
  - Seasonal allergy [Not Recovered/Not Resolved]
  - Muscle strain [Not Recovered/Not Resolved]

NARRATIVE: CASE EVENT DATE: 20240401
